FAERS Safety Report 18000812 (Version 1)
Quarter: 2020Q3

REPORT INFORMATION
  Report Type: Spontaneous
  Country: FR (occurrence: FR)
  Receive Date: 20200709
  Receipt Date: 20200709
  Transmission Date: 20201103
  Serious: Yes (Other)
  Sender: FDA-Public Use
  Company Number: FR-TEVA-2020-FR-1787851

PATIENT
  Age: 46 Year
  Sex: Male
  Weight: 76 kg

DRUGS (4)
  1. OCTREOTIDE TEVA LP 30 MG [Suspect]
     Active Substance: OCTREOTIDE
     Indication: NEUROENDOCRINE TUMOUR
     Dosage: PROLONGED?RELEASE SUSPENSION FOR INJECTION
     Route: 065
  2. OCTREOTIDE TEVA LP 30 MG [Suspect]
     Active Substance: OCTREOTIDE
     Dosage: PROLONGED?RELEASE SUSPENSION FOR INJECTION.
     Route: 030
     Dates: start: 20200217
  3. OCTREOTIDE TEVA LP 30 MG [Suspect]
     Active Substance: OCTREOTIDE
     Dosage: PROLONGED?RELEASE SUSPENSION FOR INJECTION.
     Route: 030
     Dates: start: 20200314
  4. OCTREOTIDE TEVA LP 30 MG [Suspect]
     Active Substance: OCTREOTIDE
     Dosage: PROLONGED?RELEASE SUSPENSION FOR INJECTION.
     Route: 030
     Dates: start: 20200410

REACTIONS (5)
  - Fatigue [Recovered/Resolved]
  - Product substitution issue [Unknown]
  - Injection site pain [Recovered/Resolved]
  - Pyrexia [Recovered/Resolved]
  - Feeling cold [Recovered/Resolved]

NARRATIVE: CASE EVENT DATE: 2020
